FAERS Safety Report 17585620 (Version 1)
Quarter: 2020Q1

REPORT INFORMATION
  Report Type: Spontaneous
  Country: US (occurrence: US)
  Receive Date: 20200326
  Receipt Date: 20200326
  Transmission Date: 20200409
  Serious: Yes (Death, Other)
  Sender: FDA-Public Use
  Company Number: US-OTSUKA-2020_008053

PATIENT
  Age: 11 Year
  Sex: Female

DRUGS (14)
  1. MYCOPHENOLATE MOFETIL. [Suspect]
     Active Substance: MYCOPHENOLATE MOFETIL
     Indication: PRIMARY IMMUNODEFICIENCY SYNDROME
     Dosage: DAY +5 UNTIL DAY +35
     Route: 065
  2. MYCOPHENOLATE MOFETIL. [Suspect]
     Active Substance: MYCOPHENOLATE MOFETIL
     Indication: BONE MARROW CONDITIONING REGIMEN
  3. AZITHROMYCIN ANHYDROUS. [Concomitant]
     Active Substance: AZITHROMYCIN ANHYDROUS
     Indication: CRYPTOSPORIDIOSIS INFECTION
     Dosage: UNK
     Route: 065
  4. FLUDARABINE [Suspect]
     Active Substance: FLUDARABINE PHOSPHATE
     Indication: BONE MARROW CONDITIONING REGIMEN
     Dosage: 30 MG/M2 DAYS -6 AND -2
     Route: 065
  5. BUSULFAN. [Suspect]
     Active Substance: BUSULFAN
     Indication: PRIMARY IMMUNODEFICIENCY SYNDROME
     Dosage: 2.7 MG/KG/DAY DAYS -4, -3,  AND -2;AND 200 CGY TOTAL BODY IRRADIATION ON DAY -1
     Route: 065
  6. PAROMOMYCIN [Concomitant]
     Active Substance: PAROMOMYCIN
     Indication: CRYPTOSPORIDIOSIS INFECTION
     Dosage: UNK
     Route: 065
  7. FLUDARABINE [Suspect]
     Active Substance: FLUDARABINE PHOSPHATE
     Indication: PRIMARY IMMUNODEFICIENCY SYNDROME
  8. CYCLOPHOSPHAMIDE. [Suspect]
     Active Substance: CYCLOPHOSPHAMIDE
     Indication: BONE MARROW CONDITIONING REGIMEN
     Dosage: 14.5 MG/KG, ON DAYS -6 AND -5
     Route: 065
  9. NITAZOXANIDE [Concomitant]
     Active Substance: NITAZOXANIDE
     Indication: CRYPTOSPORIDIOSIS INFECTION
     Dosage: UNK
     Route: 065
  10. RIFAXIMIN. [Concomitant]
     Active Substance: RIFAXIMIN
     Indication: CRYPTOSPORIDIOSIS INFECTION
     Dosage: UNK
     Route: 065
  11. BUSULFAN. [Suspect]
     Active Substance: BUSULFAN
     Indication: BONE MARROW CONDITIONING REGIMEN
  12. TACROLIMUS. [Suspect]
     Active Substance: TACROLIMUS
     Indication: PRIMARY IMMUNODEFICIENCY SYNDROME
     Dosage: DAY +5 UNTIL DAY +180
     Route: 065
  13. CYCLOPHOSPHAMIDE. [Suspect]
     Active Substance: CYCLOPHOSPHAMIDE
     Indication: PRIMARY IMMUNODEFICIENCY SYNDROME
     Dosage: 50 MG/KG, RECIPIENT BODY WEIGHT ON DAYS +3  AND +4
     Route: 065
  14. TACROLIMUS. [Suspect]
     Active Substance: TACROLIMUS
     Indication: BONE MARROW CONDITIONING REGIMEN
     Dosage: STOPPED ON DAY  -7
     Route: 065

REACTIONS (6)
  - Candida sepsis [Fatal]
  - Herpes simplex [Fatal]
  - Product use in unapproved indication [Unknown]
  - Venoocclusive liver disease [Fatal]
  - Hepatic failure [Fatal]
  - Multiple organ dysfunction syndrome [Fatal]
